FAERS Safety Report 12080231 (Version 2)
Quarter: 2016Q1

REPORT INFORMATION
  Report Type: Report from Study
  Country: US (occurrence: US)
  Receive Date: 20160216
  Receipt Date: 20160316
  Transmission Date: 20160526
  Serious: Yes (Other)
  Sender: FDA-Public Use
  Company Number: US-BAYER-2015-413249

PATIENT
  Age: 50 Year
  Sex: Male

DRUGS (2)
  1. STIVARGA [Suspect]
     Active Substance: REGORAFENIB
     Indication: COLON CANCER
     Dosage: 160 MG, QD FOR 21 DAYS IN 28 DAY CYCLE
     Route: 048
  2. STIVARGA [Suspect]
     Active Substance: REGORAFENIB
     Indication: RENAL CANCER
     Dosage: 160 MG, QD
     Route: 048
     Dates: start: 20150813, end: 2015

REACTIONS (14)
  - Blood pressure increased [None]
  - Diarrhoea [None]
  - Pain of skin [Recovering/Resolving]
  - Multiple allergies [None]
  - Sneezing [None]
  - Pain in extremity [None]
  - Blood phosphorus decreased [None]
  - Abdominal pain upper [None]
  - Heart rate irregular [None]
  - Blister [None]
  - Dry skin [None]
  - Rash papular [None]
  - Gastroenteritis viral [None]
  - Sinus headache [None]

NARRATIVE: CASE EVENT DATE: 20150831
